FAERS Safety Report 8953151 (Version 3)
Quarter: 2012Q4

REPORT INFORMATION
  Report Type: Report from Study
  Country: FR (occurrence: FR)
  Receive Date: 20121206
  Receipt Date: 20121221
  Transmission Date: 20130627
  Serious: Yes (Hospitalization, Other)
  Sender: FDA-Public Use
  Company Number: FR-BRISTOL-MYERS SQUIBB COMPANY-17169400

PATIENT
  Age: 69 Year
  Sex: Female

DRUGS (15)
  1. IPILIMUMAB [Suspect]
     Indication: MALIGNANT MELANOMA
     Route: 042
     Dates: start: 20120619
  2. OLMESARTAN MEDOXOMIL [Concomitant]
     Route: 048
     Dates: start: 20020401
  3. BISOPROLOL [Concomitant]
     Dosage: 01Apr02-26Nv12;02Dec12-03Dec12
     Dates: start: 20020401, end: 20121203
  4. HYDROCHLOROTHIAZIDE [Concomitant]
     Route: 048
     Dates: start: 20020401, end: 20121126
  5. ALLOPURINOL [Concomitant]
     Route: 048
     Dates: start: 20060401
  6. RABEPRAZOLE [Concomitant]
     Route: 048
     Dates: start: 20060401
  7. DIFFU-K [Concomitant]
     Dosage: 2caps:02Aug-07Aug12
1caps:08Aug-ong
     Route: 048
     Dates: start: 20120802
  8. PREDNISONE [Concomitant]
     Dosage: 60mg:2Aug-10Aug50mg:31Aug-30Sep15mg:31Oct-09Nov12.5mg:10Nov-19Nov10mg:20Nov-24Nov12,40mg:25Nov-ong
     Route: 048
     Dates: start: 20120802
  9. CIPROFLOXACIN [Concomitant]
     Route: 048
     Dates: start: 20121126, end: 20121203
  10. METRONIDAZOLE [Concomitant]
     Route: 048
     Dates: start: 20121126
  11. OFLOXACIN [Concomitant]
     Route: 048
     Dates: start: 20121203
  12. PREDNISOLONE [Concomitant]
     Route: 048
     Dates: start: 201211
  13. BISOPROLOL [Concomitant]
     Route: 048
     Dates: start: 20121202, end: 20121203
  14. HYDROCHLOROTHIAZIDE [Concomitant]
     Dosage: 01Apr02-26NOv2012; 02Dec12-03Dec12
     Route: 048
     Dates: start: 20020401, end: 20121203
  15. TRAMADOL [Concomitant]
     Route: 048
     Dates: start: 20080401, end: 20120914

REACTIONS (3)
  - Pyelonephritis [Recovered/Resolved]
  - Colitis [Recovered/Resolved]
  - Pancreatitis [Not Recovered/Not Resolved]
